FAERS Safety Report 9236505 (Version 1)
Quarter: 2013Q2

REPORT INFORMATION
  Report Type: Spontaneous
  Country: CA (occurrence: CA)
  Receive Date: 20130417
  Receipt Date: 20130417
  Transmission Date: 20140414
  Serious: Yes (Other)
  Sender: FDA-Public Use
  Company Number: CA-ASTRAZENECA-2013SE23245

PATIENT
  Age: 90 Year
  Sex: Female

DRUGS (4)
  1. BUPIVACAINE [Suspect]
     Route: 037
  2. METOPROLOL [Concomitant]
  3. ENALAPRIL [Concomitant]
  4. WARFARIN [Concomitant]

REACTIONS (1)
  - Stress cardiomyopathy [Recovered/Resolved]
